FAERS Safety Report 20501700 (Version 1)
Quarter: 2022Q1

REPORT INFORMATION
  Report Type: Spontaneous
  Country: US (occurrence: None)
  Receive Date: 20220218
  Receipt Date: 20220218
  Transmission Date: 20220423
  Serious: Yes (Life-Threatening, Hospitalization, Disabling)
  Sender: FDA-Public Use
  Company Number: None

PATIENT
  Age: 64 Year
  Sex: Female
  Weight: 98.1 kg

DRUGS (1)
  1. HUMIRA [Suspect]
     Active Substance: ADALIMUMAB
     Indication: Rheumatoid arthritis
     Dates: start: 20050101, end: 20190719

REACTIONS (12)
  - Hodgkin^s disease [None]
  - Respiratory disorder [None]
  - Jugular vein thrombosis [None]
  - Migraine [None]
  - Injection site bruising [None]
  - Cognitive disorder [None]
  - Fatigue [None]
  - Anxiety [None]
  - Depression [None]
  - Pain [None]
  - Emotional distress [None]
  - Product complaint [None]

NARRATIVE: CASE EVENT DATE: 20190719
